FAERS Safety Report 9335671 (Version 1)
Quarter: 2013Q2

REPORT INFORMATION
  Report Type: Report from Study
  Country: DE (occurrence: DE)
  Receive Date: 20130607
  Receipt Date: 20130607
  Transmission Date: 20140414
  Serious: Yes (Other)
  Sender: FDA-Public Use
  Company Number: DE-ROCHE-1232243

PATIENT
  Sex: 0

DRUGS (4)
  1. CAPECITABINE [Suspect]
     Indication: GASTRIC CANCER
     Dosage: ON DAYS 1 -14 REPEATED FROM DAY 22. BEFORE AND AFTER READIOTHERPY.
     Route: 065
  2. CAPECITABINE [Suspect]
     Dosage: ON DAYS 1-33. DURING RADIOTHERAPY
     Route: 065
  3. OXALIPLATIN [Suspect]
     Indication: GASTRIC CANCER
     Dosage: ON DAYS 1 AND 22. BEFORE AND AFTER RADIOTHERPY
     Route: 065
  4. OXALIPLATIN [Suspect]
     Dosage: 40 TO 50 MG/M2 DURING RADIOTHERPY
     Route: 065

REACTIONS (12)
  - Flatulence [Unknown]
  - Abdominal pain [Unknown]
  - Abdominal distension [Unknown]
  - Nausea [Unknown]
  - Vomiting [Unknown]
  - Anxiety [Unknown]
  - Fatigue [Unknown]
  - Irritability [Unknown]
  - Diarrhoea [Unknown]
  - Skin hyperpigmentation [Unknown]
  - Dry skin [Unknown]
  - Nail disorder [Unknown]
